FAERS Safety Report 24110419 (Version 4)
Quarter: 2024Q3

REPORT INFORMATION
  Report Type: Spontaneous
  Country: CA (occurrence: CA)
  Receive Date: 20240718
  Receipt Date: 20240928
  Transmission Date: 20241016
  Serious: Yes (Hospitalization)
  Sender: CELLTRION
  Company Number: CA-PFIZER INC-202400034879

PATIENT

DRUGS (9)
  1. INFLECTRA [Suspect]
     Active Substance: INFLIXIMAB-DYYB
     Indication: Colitis ulcerative
     Dosage: 10 MG/KG, W 0, 2, 6, THEN EVERY 8 WEEKS, HOSPITAL START
     Route: 042
     Dates: start: 20240204
  2. INFLECTRA [Suspect]
     Active Substance: INFLIXIMAB-DYYB
     Dosage: 10 MG/KG, 0, 2, 6, THEN EVERY 8 WEEKS, HOSPITAL START
     Route: 042
     Dates: start: 20240219
  3. INFLECTRA [Suspect]
     Active Substance: INFLIXIMAB-DYYB
     Dosage: 10 MG/KG (800 MG), WEEK 6 (0, 2, 6, THEN EVERY 8 WEEKS, HOSPITAL START)
     Route: 042
     Dates: start: 20240318
  4. INFLECTRA [Suspect]
     Active Substance: INFLIXIMAB-DYYB
     Dosage: 10 MG/KG, W 0, 2, 6, THEN EVERY 8 WEEKS, HOSPITAL START
     Route: 042
     Dates: start: 20240513
  5. INFLECTRA [Suspect]
     Active Substance: INFLIXIMAB-DYYB
     Dosage: 10 MG/KG, W 0, 2, 6, THEN EVERY 8 WEEKS, HOSPITAL START
     Route: 042
     Dates: start: 20240513
  6. INFLECTRA [Suspect]
     Active Substance: INFLIXIMAB-DYYB
     Dosage: 800 MG, 10 WEEKS AND 2 DAYS (10 MG/KG, W 0, 2, 6, THEN EVERY 8 WEEKS, HOSPITAL START)
     Route: 042
     Dates: start: 20240724
  7. INFLECTRA [Suspect]
     Active Substance: INFLIXIMAB-DYYB
     Dosage: 800 MG, EVERY 8 WEEKS (SUPPOSED TO RECEIVE 10 MG/KG ROUNDED TO THE NEAREST HUNDRED) (W 0, 2, 6 WKS
     Route: 042
     Dates: start: 20240918
  8. PREDNISONE [Concomitant]
     Active Substance: PREDNISONE
     Dosage: UNK
     Dates: start: 20240129
  9. PREDNISONE [Concomitant]
     Active Substance: PREDNISONE
     Dosage: 50 MG

REACTIONS (9)
  - Haemorrhage [Unknown]
  - Headache [Recovered/Resolved]
  - Infection [Unknown]
  - Blood pressure increased [Unknown]
  - Oropharyngeal pain [Recovered/Resolved]
  - Off label use [Unknown]
  - Maternal exposure during pregnancy [Unknown]
  - Hypotension [Recovered/Resolved]
  - Incorrect dose administered [Unknown]

NARRATIVE: CASE EVENT DATE: 20240101
